FAERS Safety Report 24010962 (Version 1)
Quarter: 2024Q2

REPORT INFORMATION
  Report Type: Spontaneous
  Country: US (occurrence: None)
  Receive Date: 20240624
  Receipt Date: 20240624
  Transmission Date: 20240716
  Serious: Yes (Life-Threatening)
  Sender: FDA-Public Use
  Company Number: None

PATIENT
  Age: 47 Year
  Sex: Male
  Weight: 85.5 kg

DRUGS (7)
  1. ORPHENADRINE [Suspect]
     Active Substance: ORPHENADRINE
     Indication: Muscle spasms
     Dosage: 20 TABLETS TWICE A DAY ORAL
     Route: 048
     Dates: start: 20240619, end: 20240623
  2. GABAPENTIN [Concomitant]
     Active Substance: GABAPENTIN
  3. ESCITALOPRAM [Concomitant]
     Active Substance: ESCITALOPRAM OXALATE
  4. LAMOTRIGINE [Concomitant]
     Active Substance: LAMOTRIGINE
  5. CLONAZEPAM [Concomitant]
     Active Substance: CLONAZEPAM
  6. HYDROXYZINE [Concomitant]
     Active Substance: HYDROXYZINE HYDROCHLORIDE
  7. IBUPROFEN [Concomitant]
     Active Substance: IBUPROFEN

REACTIONS (4)
  - Therapeutic product effect decreased [None]
  - Hallucination, visual [None]
  - Heart rate increased [None]
  - Hallucination, auditory [None]

NARRATIVE: CASE EVENT DATE: 20240622
